FAERS Safety Report 7781636-7 (Version None)
Quarter: 2011Q3

REPORT INFORMATION
  Report Type: 
  Country: None (occurrence: None)
  Receive Date: 20110927
  Receipt Date: 20110922
  Transmission Date: 20111222
  Serious: Yes (Death)
  Sender: FDA-Public Use
  Company Number: US-CELGENEUS-163-21880-11092891

PATIENT
  Sex: Female

DRUGS (9)
  1. MARINOL [Concomitant]
     Route: 065
  2. PRILOSEC [Concomitant]
     Route: 065
  3. DEXAMETHASONE [Concomitant]
     Route: 065
  4. CITRUS CALCIUM + D MAXIMUM [Concomitant]
     Route: 065
  5. MIRALAX [Concomitant]
     Route: 065
  6. CLARITIN [Concomitant]
     Route: 065
  7. REVLIMID [Suspect]
     Dosage: 10 MILLIGRAM
     Route: 048
     Dates: start: 20110829, end: 20110101
  8. PHENOBARBITAL TAB [Concomitant]
     Route: 065
  9. CIPROFLOXACIN [Concomitant]
     Route: 065

REACTIONS (1)
  - DEATH [None]
